FAERS Safety Report 16085914 (Version 1)
Quarter: 2019Q1

REPORT INFORMATION
  Report Type: Spontaneous
  Country: US (occurrence: US)
  Receive Date: 20190318
  Receipt Date: 20190318
  Transmission Date: 20190418
  Serious: Yes (Hospitalization)
  Sender: FDA-Public Use
  Company Number: US-PFIZER INC-2019110137

PATIENT
  Age: 55 Year
  Sex: Female
  Weight: 64 kg

DRUGS (1)
  1. DEPO-MEDROL [Suspect]
     Active Substance: METHYLPREDNISOLONE ACETATE
     Indication: INFLAMMATION
     Dosage: 80 MG, SINGLE DOSE (ADMINISTERED THROUGH A GUIDED ULTRASOUND TO THE LEFT HIP)
     Dates: start: 20181213, end: 20181213

REACTIONS (7)
  - Blood creatinine abnormal [Unknown]
  - Chest pain [Unknown]
  - Gait disturbance [Recovering/Resolving]
  - Scar [Unknown]
  - Infection [Unknown]
  - Pain in extremity [Recovering/Resolving]
  - Skin discolouration [Unknown]

NARRATIVE: CASE EVENT DATE: 201812
